FAERS Safety Report 5639942-8 (Version None)
Quarter: 2008Q1

REPORT INFORMATION
  Report Type: 
  Country: None (occurrence: None)
  Receive Date: 20080227
  Receipt Date: 20080222
  Transmission Date: 20080703
  Serious: Yes (Life-Threatening, Hospitalization)
  Sender: FDA-Public Use
  Company Number: FR-NOVOPROD-272564

PATIENT

DRUGS (4)
  1. NOVOSEVEN [Suspect]
     Indication: POSTPARTUM HAEMORRHAGE
     Dosage: 60 UG/KG, UNK
     Route: 042
     Dates: start: 20050529, end: 20050529
  2. NOVOSEVEN [Suspect]
     Dosage: 120 UG/KG, UNK
     Route: 042
     Dates: start: 20050529, end: 20050529
  3. SYNTOCINON [Concomitant]
  4. NALADOR [Concomitant]

REACTIONS (3)
  - ATELECTASIS [None]
  - LUNG DISORDER [None]
  - SPLENIC INFARCTION [None]
